FAERS Safety Report 6493524-7 (Version None)
Quarter: 2009Q4

REPORT INFORMATION
  Report Type: 
  Country: None (occurrence: None)
  Receive Date: 20091211
  Receipt Date: 20091211
  Transmission Date: 20100525
  Serious: Yes (Life-Threatening, Other)
  Sender: FDA-Public Use
  Company Number: None

PATIENT
  Age: 49 Year
  Sex: Female
  Weight: 79.3795 kg

DRUGS (6)
  1. PRISTIQ [Suspect]
     Indication: DEPRESSION
     Dosage: 50MG 1 PER DAY PO
     Route: 048
     Dates: start: 20090917, end: 20091117
  2. NASACORT AQ [Concomitant]
  3. QVAR 40 [Concomitant]
  4. PRO-AIR [Concomitant]
  5. DETROL LA [Concomitant]
  6. DIGOXIN [Concomitant]

REACTIONS (2)
  - DRUG INEFFECTIVE [None]
  - TACHYCARDIA [None]
